FAERS Safety Report 6211518-3 (Version None)
Quarter: 2009Q2

REPORT INFORMATION
  Report Type: 
  Country: None (occurrence: None)
  Receive Date: 20090528
  Receipt Date: 20090513
  Transmission Date: 20091009
  Serious: Yes (Hospitalization, Other)
  Sender: FDA-Public Use
  Company Number: 2008AP003022

PATIENT
  Age: 82 Year
  Sex: Female

DRUGS (1)
  1. OMEPRAZOLE [Suspect]
     Indication: DYSPEPSIA

REACTIONS (7)
  - CHILLS [None]
  - INFLAMMATION [None]
  - LEUKOCYTURIA [None]
  - PYURIA [None]
  - RENAL FAILURE ACUTE [None]
  - SELF-MEDICATION [None]
  - TUBULOINTERSTITIAL NEPHRITIS [None]
